FAERS Safety Report 17568124 (Version 1)
Quarter: 2020Q1

REPORT INFORMATION
  Report Type: Spontaneous
  Country: US (occurrence: US)
  Receive Date: 20200321
  Receipt Date: 20200321
  Transmission Date: 20200409
  Serious: Yes (Other)
  Sender: FDA-Public Use
  Company Number: US-AMGEN-USASP2020043670

PATIENT
  Sex: Male

DRUGS (1)
  1. ENBREL [Suspect]
     Active Substance: ETANERCEPT
     Indication: PSORIATIC ARTHROPATHY
     Dosage: UNK
     Route: 065
     Dates: start: 2011

REACTIONS (5)
  - Chronic inflammatory demyelinating polyradiculoneuropathy [Unknown]
  - Speech disorder [Unknown]
  - Optic neuritis [Unknown]
  - Erectile dysfunction [Unknown]
  - Depression [Unknown]

NARRATIVE: CASE EVENT DATE: 20170111
